FAERS Safety Report 17407224 (Version 7)
Quarter: 2021Q3

REPORT INFORMATION
  Report Type: Report from Study
  Country: US (occurrence: US)
  Receive Date: 20200212
  Receipt Date: 20210916
  Transmission Date: 20211014
  Serious: Yes (Other)
  Sender: FDA-Public Use
  Company Number: US-DSJP-DSU-2020-104903

PATIENT
  Age: 57 Year
  Sex: Female

DRUGS (4)
  1. CALCIUM + VITAMIN D3 [Concomitant]
     Active Substance: CALCIUM CARBONATE\CHOLECALCIFEROL
     Dosage: 1 DF, QD (500 MG( 1 ,250MG) ?125 UNIT PER TABLET)
     Route: 048
  2. TRIAMCINOLONE [Concomitant]
     Active Substance: TRIAMCINOLONE
     Dosage: 1 APPLICATION, PRN
     Route: 061
  3. PEXIDARTINIB [Suspect]
     Active Substance: PEXIDARTINIB
     Dosage: 200 MG, BID
     Route: 048
     Dates: start: 20200304, end: 20200307
  4. PEXIDARTINIB [Suspect]
     Active Substance: PEXIDARTINIB
     Indication: GIANT CELL TUMOUR OF TENDON SHEATH
     Dosage: 400 MG, BID
     Route: 048
     Dates: start: 20200110, end: 20200217

REACTIONS (15)
  - Gamma-glutamyltransferase increased [Recovered/Resolved]
  - Rash [Unknown]
  - Aspartate aminotransferase increased [Recovered/Resolved]
  - Hot flush [Unknown]
  - Hypoaesthesia [Unknown]
  - Anxiety [Unknown]
  - Abdominal discomfort [Recovering/Resolving]
  - Thrombosis [Unknown]
  - Alanine aminotransferase increased [Recovered/Resolved]
  - Hepatic enzyme increased [Recovered/Resolved]
  - Faeces soft [Unknown]
  - Liver function test increased [Recovered/Resolved]
  - Fatigue [Unknown]
  - Pyrexia [Not Recovered/Not Resolved]
  - Blood alkaline phosphatase increased [Recovered/Resolved]

NARRATIVE: CASE EVENT DATE: 2020
